FAERS Safety Report 8421083-8 (Version None)
Quarter: 2012Q2

REPORT INFORMATION
  Report Type: 
  Country: None (occurrence: None)
  Receive Date: 20120604
  Receipt Date: 20120604
  Transmission Date: 20120825
  Serious: Yes (Disabling, Other)
  Sender: FDA-Public Use
  Company Number: None

PATIENT
  Age: 33 Year
  Sex: Female
  Weight: 90.7194 kg

DRUGS (1)
  1. PENICILLIN [Suspect]
     Dosage: 1 TABLET EVERY 6 HOURS PO
     Route: 048
     Dates: start: 20120515, end: 20120531

REACTIONS (3)
  - ANXIETY [None]
  - NERVOUS SYSTEM DISORDER [None]
  - TREMOR [None]
